FAERS Safety Report 20111861 (Version 1)
Quarter: 2021Q4

REPORT INFORMATION
  Report Type: Spontaneous
  Country: US (occurrence: US)
  Receive Date: 20211125
  Receipt Date: 20211125
  Transmission Date: 20220303
  Serious: No
  Sender: FDA-Public Use
  Company Number: US-CELGENE-USA-20211104758

PATIENT
  Age: 55 Year
  Sex: Male

DRUGS (7)
  1. REVLIMID [Suspect]
     Active Substance: LENALIDOMIDE
     Indication: Plasma cell myeloma
     Dosage: 25 MILLIGRAM
     Route: 048
     Dates: start: 200812
  2. REVLIMID [Suspect]
     Active Substance: LENALIDOMIDE
     Dosage: 15 MG- 10MG
     Route: 048
     Dates: start: 200907
  3. REVLIMID [Suspect]
     Active Substance: LENALIDOMIDE
     Dosage: 25 MG - 10MG
     Route: 048
     Dates: start: 201002
  4. REVLIMID [Suspect]
     Active Substance: LENALIDOMIDE
     Dosage: 10  MILLIGRAM
     Route: 048
     Dates: start: 201705
  5. REVLIMID [Suspect]
     Active Substance: LENALIDOMIDE
     Dosage: 5MG - 10MG
     Route: 048
     Dates: start: 201907
  6. REVLIMID [Suspect]
     Active Substance: LENALIDOMIDE
     Dosage: 15 MILLIGRAM
     Route: 048
     Dates: start: 202012
  7. REVLIMID [Suspect]
     Active Substance: LENALIDOMIDE
     Dosage: 5 MILLIGRAM
     Route: 048
     Dates: start: 202101

REACTIONS (1)
  - Illness [Unknown]

NARRATIVE: CASE EVENT DATE: 20211115
